FAERS Safety Report 18972509 (Version 1)
Quarter: 2021Q1

REPORT INFORMATION
  Report Type: Spontaneous
  Country: US (occurrence: US)
  Receive Date: 20210304
  Receipt Date: 20210304
  Transmission Date: 20210420
  Serious: Yes (Hospitalization)
  Sender: FDA-Public Use
  Company Number: None

PATIENT
  Age: 83 Year
  Sex: Female

DRUGS (9)
  1. OXYCODONE AND ACETAMINOPHEN [Concomitant]
     Active Substance: ACETAMINOPHEN\OXYCODONE HYDROCHLORIDE
  2. PANTOPRAZOLE [Concomitant]
     Active Substance: PANTOPRAZOLE
  3. AMLODIPINE [Concomitant]
     Active Substance: AMLODIPINE BESYLATE
  4. TELMISARTAN. [Concomitant]
     Active Substance: TELMISARTAN
  5. ELIQUIS [Concomitant]
     Active Substance: APIXABAN
  6. REPATHA [Suspect]
     Active Substance: EVOLOCUMAB
     Indication: ACUTE MYOCARDIAL INFARCTION
     Dosage: ?          OTHER FREQUENCY:EVERY 2 WEEKS;?
     Route: 058
     Dates: start: 20180619
  7. OXYCODONE [Concomitant]
     Active Substance: OXYCODONE
  8. BUPROPN HCL [Concomitant]
     Active Substance: BUPROPION HYDROCHLORIDE
  9. METOPROL SUC [Concomitant]

REACTIONS (1)
  - Haemoglobin decreased [None]

NARRATIVE: CASE EVENT DATE: 20210218
